FAERS Safety Report 7499334-6 (Version None)
Quarter: 2011Q2

REPORT INFORMATION
  Report Type: 
  Country: None (occurrence: None)
  Receive Date: 20110524
  Receipt Date: 20110513
  Transmission Date: 20111010
  Serious: Yes (Hospitalization)
  Sender: FDA-Public Use
  Company Number: FR-SANOFI-AVENTIS-2011SA031075

PATIENT
  Age: 81 Year
  Sex: Female

DRUGS (10)
  1. HYTACAND [Concomitant]
     Route: 048
  2. ZOLPIDEM [Concomitant]
     Route: 048
  3. URBANYL [Concomitant]
     Route: 048
  4. TRIMETAZIDINE HYDROCHLORIDE [Concomitant]
     Route: 048
  5. PREVISCAN [Suspect]
     Indication: THROMBOSIS PROPHYLAXIS
     Route: 048
  6. LANZOR [Concomitant]
     Route: 048
  7. ART 50 [Concomitant]
     Route: 048
  8. FEXOFENADINE HCL [Suspect]
     Route: 048
     Dates: start: 20110101
  9. DIGOXIN [Concomitant]
     Indication: ARRHYTHMIA
     Route: 048
  10. TANAKAN [Suspect]
     Route: 048
     Dates: start: 20110304, end: 20110323

REACTIONS (1)
  - VASCULAR PURPURA [None]
